FAERS Safety Report 5485994-8 (Version None)
Quarter: 2007Q4

REPORT INFORMATION
  Report Type: 
  Country: None (occurrence: None)
  Receive Date: 20071012
  Receipt Date: 20071001
  Transmission Date: 20080405
  Serious: Yes (Other)
  Sender: FDA-Public Use
  Company Number: 17622

PATIENT
  Sex: Female

DRUGS (4)
  1. METHOTREXATE [Suspect]
  2. FLUOROURACIL [Suspect]
  3. COPAXONE [Suspect]
     Indication: MULTIPLE SCLEROSIS
     Dosage: 20 MG DAILY SC
     Route: 058
     Dates: start: 20050101
  4. CYCLOPHOSPHAMIDE [Suspect]

REACTIONS (5)
  - BREAST CANCER FEMALE [None]
  - DYSPNOEA [None]
  - NEUTROPENIA [None]
  - PHLEBITIS [None]
  - PULMONARY EMBOLISM [None]
